FAERS Safety Report 5524053-2 (Version None)
Quarter: 2007Q4

REPORT INFORMATION
  Report Type: 
  Country: None (occurrence: None)
  Receive Date: 20071121
  Receipt Date: 20071114
  Transmission Date: 20080405
  Serious: Yes (Other)
  Sender: FDA-Public Use
  Company Number: US-BOEHRINGER INGELHEIM PHARMACEUTICALS, INC.-2007-DE-06741GD

PATIENT
  Age: 39 Year
  Sex: Female

DRUGS (11)
  1. ATROVENT [Suspect]
     Indication: ASTHMA
     Route: 055
  2. COMBIVENT [Suspect]
     Indication: ASTHMA
     Route: 055
  3. PREDNISONE TAB [Suspect]
     Indication: ASTHMA
     Route: 048
  4. FLUTICASONE PROPIONATE [Suspect]
     Indication: ASTHMA
  5. METHOTREXATE [Suspect]
     Indication: ASTHMA
  6. SALMETEROL [Suspect]
     Indication: ASTHMA
  7. MONTELUKAST SODIUM [Suspect]
     Indication: ASTHMA
  8. ZILEUTON [Suspect]
     Indication: ASTHMA
  9. OMALIZUMAB [Suspect]
     Indication: ASTHMA
  10. CETIRIZINE HCL [Suspect]
     Indication: ASTHMA
  11. PROVENTIL [Suspect]
     Indication: ASTHMA
     Dosage: 8 TO 24 PUFFS
     Route: 055

REACTIONS (2)
  - BRONCHOSPASM PARADOXICAL [None]
  - DRUG INEFFECTIVE [None]
